FAERS Safety Report 4952808-1 (Version None)
Quarter: 2006Q1

REPORT INFORMATION
  Report Type: 
  Country: None (occurrence: None)
  Receive Date: 20060324
  Receipt Date: 20060315
  Transmission Date: 20060701
  Serious: Yes (Hospitalization)
  Sender: FDA-Public Use
  Company Number: FR-JNJFOC-20060304439

PATIENT
  Age: 41 Year
  Sex: Female
  Weight: 68 kg

DRUGS (12)
  1. REMICADE [Suspect]
     Route: 042
  2. REMICADE [Suspect]
     Route: 042
  3. REMICADE [Suspect]
     Indication: ANKYLOSING SPONDYLITIS
     Route: 042
  4. TOLEXINE [Concomitant]
     Route: 065
  5. RIFAMPIN AND ISONIAZID [Concomitant]
     Route: 065
  6. RIFAMPIN AND ISONIAZID [Concomitant]
     Indication: TUBERCULIN TEST POSITIVE
     Route: 065
  7. NORDETTE-21 [Concomitant]
     Route: 065
  8. NORDETTE-21 [Concomitant]
     Route: 065
  9. MOPRAL [Concomitant]
     Route: 065
  10. DOLIPRANE [Concomitant]
     Route: 065
  11. BUTAZOLIDINE [Concomitant]
     Route: 065
  12. ATARAX [Concomitant]
     Route: 065

REACTIONS (7)
  - BRADYCARDIA [None]
  - CHILLS [None]
  - INFUSION RELATED REACTION [None]
  - PARAESTHESIA [None]
  - RESPIRATORY DISORDER [None]
  - SHOCK [None]
  - VOMITING [None]
